FAERS Safety Report 4498060-5 (Version None)
Quarter: 2004Q4

REPORT INFORMATION
  Report Type: 
  Country: None (occurrence: None)
  Receive Date: 20041109
  Receipt Date: 20041109
  Transmission Date: 20050328
  Serious: Yes (Hospitalization)
  Sender: FDA-Public Use
  Company Number: None

PATIENT
  Age: 62 Year
  Sex: Female
  Weight: 96.1626 kg

DRUGS (14)
  1. GEMCITABINE [Suspect]
     Indication: NON-SMALL CELL LUNG CANCER
     Dosage: 1500MG/M2  Q2WEEKS  INTRAVENOUS
     Route: 042
     Dates: start: 20041022, end: 20041022
  2. PEMETREXED [Suspect]
     Indication: NON-SMALL CELL LUNG CANCER
     Dosage: 500MG/M2  Q2WEEKS INTRAVENOUS
     Route: 042
     Dates: start: 20041022, end: 20041022
  3. ACETAMINOPHEN [Concomitant]
  4. DIOVAN HCT [Concomitant]
  5. FISH OIL [Concomitant]
  6. FOSAMAX [Concomitant]
  7. GABEPENTIN [Concomitant]
  8. METFORMIN HCL [Concomitant]
  9. METOPROLOL TARTRATE [Concomitant]
  10. M.V.I. [Concomitant]
  11. PLAVIX [Concomitant]
  12. PLETAL [Concomitant]
  13. RABEPRAZOLE SODIUM [Concomitant]
  14. SIMVASTATIN [Concomitant]

REACTIONS (3)
  - DIARRHOEA [None]
  - FEBRILE NEUTROPENIA [None]
  - RENAL FAILURE ACUTE [None]
